FAERS Safety Report 23132210 (Version 6)
Quarter: 2024Q3

REPORT INFORMATION
  Report Type: Spontaneous
  Country: JP (occurrence: JP)
  Receive Date: 20231101
  Receipt Date: 20240707
  Transmission Date: 20241017
  Serious: Yes (Death, Other)
  Sender: BRISTOL MYERS SQUIBB
  Company Number: JP-ONO-2023JP026558

PATIENT
  Age: 71 Year
  Sex: Male
  Weight: 30 kg

DRUGS (3)
  1. OPDIVO [Suspect]
     Active Substance: NIVOLUMAB
     Indication: Gastric cancer
     Dosage: 1ST COURSE
     Route: 041
     Dates: start: 20231005, end: 20231005
  2. GIMERACIL\OTERACIL\TEGAFUR [Concomitant]
     Active Substance: GIMERACIL\OTERACIL POTASSIUM\TEGAFUR
     Indication: Gastric cancer
     Dates: start: 20231005
  3. OXALIPLATIN [Concomitant]
     Active Substance: OXALIPLATIN
     Indication: Gastric cancer
     Dates: start: 20231005

REACTIONS (3)
  - Agranulocytosis [Fatal]
  - Platelet count decreased [Fatal]
  - Pneumonia [Fatal]

NARRATIVE: CASE EVENT DATE: 20231019
